FAERS Safety Report 8889080 (Version 1)
Quarter: 2012Q4

REPORT INFORMATION
  Report Type: 
  Country: US (occurrence: US)
  Receive Date: 20121106
  Receipt Date: 20121106
  Transmission Date: 20130627
  Serious: Yes (Hospitalization, Other)
  Sender: FDA-Public Use
  Company Number: US-TARO-2012P1062513

PATIENT
  Age: 41 Year
  Sex: Female

DRUGS (4)
  1. WARFARIN [Suspect]
  2. ASPIRIN [Suspect]
  3. ENOXAPARIN [Suspect]
  4. UNFRACTIONATED HEPARIN [Suspect]
     Route: 042

REACTIONS (8)
  - Haemodynamic instability [Recovered/Resolved]
  - Haematochezia [Recovered/Resolved]
  - Lower gastrointestinal haemorrhage [Recovered/Resolved]
  - Intestinal haematoma [Recovered/Resolved]
  - Intestinal ischaemia [Recovered/Resolved]
  - Small intestinal obstruction [Recovered/Resolved]
  - Drug ineffective [Recovered/Resolved]
  - Peripheral ischaemia [Not Recovered/Not Resolved]
